FAERS Safety Report 5471954-X (Version None)
Quarter: 2007Q3

REPORT INFORMATION
  Report Type: 
  Country: None (occurrence: None)
  Receive Date: 20070928
  Receipt Date: 20070914
  Transmission Date: 20080115
  Serious: Yes (Death)
  Sender: FDA-Public Use
  Company Number: GB-GENENTECH-248444

PATIENT
  Sex: Male
  Weight: 78.2 kg

DRUGS (5)
  1. BEVACIZUMAB [Suspect]
     Indication: COLON CANCER
     Dosage: 650 MG, Q3W
     Route: 042
     Dates: start: 20070622
  2. CAPECITABINE [Suspect]
     Indication: COLON CANCER
     Dosage: 2500 MG, BID
     Route: 048
     Dates: start: 20070622
  3. ATENOLOL [Concomitant]
     Indication: DRUG USE FOR UNKNOWN INDICATION
  4. SIMVASTATIN [Concomitant]
     Indication: DRUG USE FOR UNKNOWN INDICATION
  5. WARFARIN [Concomitant]
     Indication: DRUG USE FOR UNKNOWN INDICATION
     Dates: start: 20070718

REACTIONS (1)
  - SUDDEN DEATH [None]
